FAERS Safety Report 7332666-0 (Version None)
Quarter: 2011Q1

REPORT INFORMATION
  Report Type: 
  Country: None (occurrence: None)
  Receive Date: 20110304
  Receipt Date: 20110301
  Transmission Date: 20110831
  Serious: Yes (Hospitalization, Other)
  Sender: FDA-Public Use
  Company Number: US-PFIZER INC-2011045561

PATIENT
  Age: 25 Year
  Sex: Male

DRUGS (4)
  1. CLINDAMYCIN HCL [Suspect]
     Indication: PERITONSILLAR ABSCESS
     Dosage: UNK
  2. METHYLPREDNISOLONE [Concomitant]
     Indication: PHARYNGITIS STREPTOCOCCAL
  3. METHYLPREDNISOLONE [Concomitant]
     Indication: PERITONSILLAR ABSCESS
  4. CLINDAMYCIN HCL [Suspect]
     Indication: PHARYNGITIS STREPTOCOCCAL

REACTIONS (1)
  - DRUG RASH WITH EOSINOPHILIA AND SYSTEMIC SYMPTOMS [None]
